FAERS Safety Report 7503844-2 (Version None)
Quarter: 2011Q2

REPORT INFORMATION
  Report Type: 
  Country: None (occurrence: None)
  Receive Date: 20110525
  Receipt Date: 20110520
  Transmission Date: 20111010
  Serious: Yes (Other)
  Sender: FDA-Public Use
  Company Number: DE-MERCK-1105DEU00092

PATIENT
  Age: 60 Year
  Sex: Male

DRUGS (4)
  1. SINGULAIR [Suspect]
     Indication: ASTHMA
     Route: 048
     Dates: start: 20110101, end: 20110515
  2. SINGULAIR [Suspect]
     Indication: RHINITIS ALLERGIC
     Route: 048
     Dates: start: 20110101, end: 20110515
  3. SINGULAIR [Suspect]
     Route: 048
     Dates: start: 20110501
  4. SINGULAIR [Suspect]
     Route: 048
     Dates: start: 20110501

REACTIONS (3)
  - CONVULSION [None]
  - SUICIDAL IDEATION [None]
  - SYNCOPE [None]
